FAERS Safety Report 5822377-2 (Version None)
Quarter: 2008Q3

REPORT INFORMATION
  Report Type: 
  Country: None (occurrence: None)
  Receive Date: 20080722
  Receipt Date: 20080711
  Transmission Date: 20090109
  Serious: Yes (Hospitalization)
  Sender: FDA-Public Use
  Company Number: GXKR2008GB03603

PATIENT
  Age: 67 Year
  Sex: Male

DRUGS (3)
  1. TRAMADOL HCL [Suspect]
     Dosage: 1 DF, QID
     Dates: start: 20080327, end: 20080403
  2. ZOPICLONE (ZOPICLONE) [Suspect]
     Dosage: 7.5 MG, QD
     Dates: start: 20080327, end: 20080403
  3. ACETAMINOPHEN [Concomitant]

REACTIONS (1)
  - PSYCHOTIC DISORDER [None]
